FAERS Safety Report 16537383 (Version 2)
Quarter: 2019Q3

REPORT INFORMATION
  Report Type: Spontaneous
  Country: CN (occurrence: CN)
  Receive Date: 20190707
  Receipt Date: 20190730
  Transmission Date: 20191004
  Serious: Yes (Other)
  Sender: FDA-Public Use
  Company Number: CN-ASTRAZENECA-2019SE96285

PATIENT
  Sex: Female
  Weight: 50 kg

DRUGS (2)
  1. IRESSA [Suspect]
     Active Substance: GEFITINIB
     Indication: NEOPLASM SKIN
     Dosage: UNK
     Route: 048
     Dates: start: 201805, end: 2019
  2. IRESSA [Suspect]
     Active Substance: GEFITINIB
     Indication: NON-SMALL CELL LUNG CANCER
     Dosage: UNK
     Route: 048
     Dates: start: 201805, end: 2019

REACTIONS (6)
  - Malignant neoplasm progression [Unknown]
  - Abdominal pain upper [Unknown]
  - Tumour pain [Unknown]
  - Drug resistance [Unknown]
  - Insomnia [Unknown]
  - Effusion [Unknown]
